FAERS Safety Report 14161009 (Version 1)
Quarter: 2017Q4

REPORT INFORMATION
  Report Type: Spontaneous
  Country: AU (occurrence: AU)
  Receive Date: 20171106
  Receipt Date: 20171106
  Transmission Date: 20180321
  Serious: Yes (Death, Other)
  Sender: FDA-Public Use
  Company Number: AU-JNJFOC-20171102811

PATIENT
  Age: 72 Year
  Sex: Male

DRUGS (1)
  1. IMBRUVICA [Suspect]
     Active Substance: IBRUTINIB
     Indication: CHRONIC LYMPHOCYTIC LEUKAEMIA
     Route: 048
     Dates: start: 2013

REACTIONS (6)
  - Diarrhoea [Unknown]
  - Pneumocystis jirovecii pneumonia [Unknown]
  - Lower respiratory tract infection [Unknown]
  - Contusion [Unknown]
  - Neutropenia [Unknown]
  - Chronic lymphocytic leukaemia [Fatal]
